FAERS Safety Report 4393747-7 (Version None)
Quarter: 2004Q3

REPORT INFORMATION
  Report Type: 
  Country: None (occurrence: None)
  Receive Date: 20040709
  Receipt Date: 20040629
  Transmission Date: 20050211
  Serious: Yes (Other)
  Sender: FDA-Public Use
  Company Number: 371485

PATIENT
  Sex: Female

DRUGS (2)
  1. DILATREND [Suspect]
     Indication: DRUG USE FOR UNKNOWN INDICATION
     Route: 048
  2. FENOFIBRATE [Concomitant]

REACTIONS (3)
  - CORNEAL DISORDER [None]
  - EYE IRRITATION [None]
  - KERATOCONJUNCTIVITIS SICCA [None]
